FAERS Safety Report 5842398-3 (Version None)
Quarter: 2008Q3

REPORT INFORMATION
  Report Type: 
  Country: None (occurrence: None)
  Receive Date: 20080812
  Receipt Date: 20080728
  Transmission Date: 20090109
  Serious: Yes (Death, Other)
  Sender: FDA-Public Use
  Company Number: GB-PFIZER INC-2008057244

PATIENT
  Sex: Male
  Weight: 100 kg

DRUGS (1)
  1. SUTENT [Suspect]
     Indication: RENAL CELL CARCINOMA
     Route: 048
     Dates: start: 20080416, end: 20080627

REACTIONS (13)
  - BACTERIAL INFECTION [None]
  - CARDIAC FAILURE [None]
  - COUGH [None]
  - DENTAL ALVEOLAR ANOMALY [None]
  - DYSPNOEA [None]
  - FATIGUE [None]
  - GASTROINTESTINAL HAEMORRHAGE [None]
  - HAEMOPTYSIS [None]
  - INSOMNIA [None]
  - LOW CARDIAC OUTPUT SYNDROME [None]
  - MULTI-ORGAN FAILURE [None]
  - PANCYTOPENIA [None]
  - PULMONARY OEDEMA [None]
